FAERS Safety Report 7791788-0 (Version None)
Quarter: 2011Q4

REPORT INFORMATION
  Report Type: 
  Country: None (occurrence: None)
  Receive Date: 20111003
  Receipt Date: 20110926
  Transmission Date: 20120403
  Serious: No
  Sender: FDA-Public Use
  Company Number: US-PFIZER INC-2011229466

PATIENT
  Sex: Female
  Weight: 104 kg

DRUGS (4)
  1. MORPHINE SULFATE [Interacting]
     Indication: ABDOMINAL PAIN
     Dosage: 50 MG, 2X/DAY
     Route: 048
     Dates: start: 20070101
  2. NORCO [Concomitant]
     Indication: PAIN
     Dosage: 10/325, ONCE DAILY
     Route: 048
     Dates: start: 20070101
  3. SYNTHROID [Concomitant]
     Indication: THYROID DISORDER
     Dosage: 250 UG, 1X/DAY
     Route: 048
     Dates: start: 19870101
  4. CLINDAMYCIN HCL [Suspect]
     Indication: URINARY TRACT INFECTION
     Dosage: 150 MG, 2X/DAY
     Route: 048
     Dates: start: 20110901

REACTIONS (2)
  - DRUG EFFECT DECREASED [None]
  - DRUG INTERACTION [None]
